FAERS Safety Report 5856500-0 (Version None)
Quarter: 2008Q3

REPORT INFORMATION
  Report Type: 
  Country: None (occurrence: None)
  Receive Date: 20080825
  Receipt Date: 20080623
  Transmission Date: 20090109
  Serious: No
  Sender: FDA-Public Use
  Company Number: A0734353A

PATIENT
  Age: 57 Year
  Sex: Female

DRUGS (2)
  1. VERAMYST [Suspect]
     Dosage: 27.5MG PER DAY
     Route: 045
     Dates: start: 20080614
  2. ALLEGRA [Concomitant]

REACTIONS (1)
  - RHINORRHOEA [None]
